FAERS Safety Report 8901138 (Version 2)
Quarter: 2012Q4

REPORT INFORMATION
  Report Type: 
  Country: NZ (occurrence: NZ)
  Receive Date: 20121108
  Receipt Date: 20121129
  Transmission Date: 20130627
  Serious: Yes (Hospitalization, Other)
  Sender: FDA-Public Use
  Company Number: NZ-B.I. PHARMACEUTICALS,INC./RIDGEFIELD-2012-AU-01851AU

PATIENT
  Age: 53 Year
  Sex: Male
  Weight: 88 kg

DRUGS (7)
  1. PRADAXA [Suspect]
     Indication: CEREBROVASCULAR ACCIDENT PROPHYLAXIS
     Dosage: 300 mg
     Dates: start: 20120228, end: 201206
  2. PRADAXA [Suspect]
     Dates: start: 20120829
  3. CILAZAPRIL [Concomitant]
     Dosage: 5 mg
  4. METOPROLOL [Concomitant]
     Dosage: 47.5 mg
  5. ATORVASTATIN [Concomitant]
     Dosage: 40 mg
  6. OMEPRAZOLE [Concomitant]
     Dosage: 40 mg
  7. RISPERIDONE [Concomitant]
     Dosage: 0.25 mg

REACTIONS (5)
  - Cerebrovascular accident [Recovered/Resolved with Sequelae]
  - Cerebrovascular accident [Recovered/Resolved with Sequelae]
  - Syncope [Unknown]
  - Hemiparesis [Unknown]
  - Hemiparesis [Unknown]
